FAERS Safety Report 9154175 (Version 1)
Quarter: 2013Q1

REPORT INFORMATION
  Report Type: Spontaneous
  Country: US (occurrence: None)
  Receive Date: 20130308
  Receipt Date: 20130308
  Transmission Date: 20140127
  Serious: Yes (Other)
  Sender: FDA-Public Use
  Company Number: None

PATIENT
  Sex: Male

DRUGS (2)
  1. ESCITALOPRAM [Suspect]
     Indication: GENERALISED ANXIETY DISORDER
     Dosage: 20MG AM PO?JAN - MARCH 2012
     Route: 048
     Dates: start: 201201, end: 201203
  2. ESCITALOPRAM [Suspect]
     Indication: MAJOR DEPRESSION
     Dosage: 20MG AM PO?JAN - MARCH 2012
     Route: 048
     Dates: start: 201201, end: 201203

REACTIONS (2)
  - Drug ineffective [None]
  - Product substitution issue [None]
